FAERS Safety Report 8180114-3 (Version None)
Quarter: 2012Q1

REPORT INFORMATION
  Report Type: 
  Country: None (occurrence: None)
  Receive Date: 20120221
  Receipt Date: 20120206
  Transmission Date: 20120608
  Serious: Yes (Hospitalization)
  Sender: FDA-Public Use
  Company Number: GAM-015-12-AU

PATIENT
  Age: 82 Year
  Sex: Male

DRUGS (1)
  1. OCTAGAM [Suspect]
     Indication: IDIOPATHIC THROMBOCYTOPENIC PURPURA
     Dosage: 35 G - 1 X 1 / D INTRAVENOUS (NOT OTHERWISE SPECIFIED)
     Route: 042
     Dates: start: 20120103, end: 20120104

REACTIONS (6)
  - ARTHRALGIA [None]
  - DYSPNOEA [None]
  - MYALGIA [None]
  - ACUTE CORONARY SYNDROME [None]
  - PYREXIA [None]
  - TACHYCARDIA [None]
